FAERS Safety Report 7248786-5 (Version None)
Quarter: 2011Q1

REPORT INFORMATION
  Report Type: 
  Country: None (occurrence: None)
  Receive Date: 20110118
  Receipt Date: 20110103
  Transmission Date: 20110831
  Serious: Yes (Hospitalization)
  Sender: FDA-Public Use
  Company Number: DSA_44641_2011

PATIENT
  Age: 86 Year
  Sex: Female

DRUGS (3)
  1. ALENDRONIC ACID [Concomitant]
  2. MONO-TILDIEM (MONO-TILDIEM-DILTIAZEM HYDROCHLORIDE) 200 MG (NOT SPECIF [Suspect]
     Indication: PRODUCT USED FOR UNKNOWN INDICATION
     Dosage: (200 MG QD ORAL)
     Route: 048
     Dates: start: 20101025, end: 20101118
  3. MACROGOL [Concomitant]

REACTIONS (5)
  - GENERAL PHYSICAL HEALTH DETERIORATION [None]
  - PYREXIA [None]
  - SKIN EXFOLIATION [None]
  - DRUG ERUPTION [None]
  - CONJUNCTIVITIS [None]
